FAERS Safety Report 9263548 (Version 1)
Quarter: 2013Q1

REPORT INFORMATION
  Report Type: Spontaneous
  Country: US (occurrence: None)
  Receive Date: 20121212
  Receipt Date: 20121212
  Transmission Date: 20140127
  Serious: No
  Sender: FDA-Public Use
  Company Number: 1210USA014573

PATIENT
  Age: 54 Year
  Sex: Male

DRUGS (3)
  1. VICTRELIS [Suspect]
     Dosage: QAM??
     Route: 048
     Dates: start: 20120913
  2. RIBAPAK [Suspect]
     Dosage: 600 MG, QAM?
  3. PEGINTERFERON ALFA-2B [Suspect]

REACTIONS (4)
  - Irritability [None]
  - Nausea [None]
  - Stomatitis [None]
  - Pain [None]
